FAERS Safety Report 8604992-6 (Version None)
Quarter: 2012Q3

REPORT INFORMATION
  Report Type: 
  Country: None (occurrence: None)
  Receive Date: 20120820
  Receipt Date: 20120815
  Transmission Date: 20120928
  Serious: Yes (Hospitalization, Other)
  Sender: FDA-Public Use
  Company Number: US-PFIZER INC-2012199915

PATIENT
  Age: 85 Year
  Sex: Female

DRUGS (3)
  1. NORVASC [Suspect]
     Dosage: 5 MG, DAILY
     Route: 048
  2. LIPITOR [Suspect]
     Dosage: 80 MG,
     Route: 048
  3. CARDURA [Suspect]
     Dosage: 4 MG, DAILY
     Route: 048

REACTIONS (1)
  - TRANSIENT ISCHAEMIC ATTACK [None]
